FAERS Safety Report 23752839 (Version 4)
Quarter: 2024Q3

REPORT INFORMATION
  Report Type: Spontaneous
  Country: US (occurrence: US)
  Receive Date: 20240417
  Receipt Date: 20240725
  Transmission Date: 20241016
  Serious: No
  Sender: PFIZER
  Company Number: US-PFIZER INC-202400081405

PATIENT
  Age: 13 Year
  Sex: Male

DRUGS (1)
  1. GENOTROPIN [Suspect]
     Active Substance: SOMATROPIN
     Dosage: 1.2 MG, DAILY

REACTIONS (6)
  - Drug dose omission by device [Unknown]
  - Product preparation issue [Unknown]
  - Device breakage [Unknown]
  - Device leakage [Unknown]
  - Product reconstitution quality issue [Unknown]
  - Liquid product physical issue [Unknown]
